FAERS Safety Report 7030142-6 (Version None)
Quarter: 2010Q4

REPORT INFORMATION
  Report Type: 
  Country: None (occurrence: None)
  Receive Date: 20101006
  Receipt Date: 20100922
  Transmission Date: 20110411
  Serious: Yes (Hospitalization)
  Sender: FDA-Public Use
  Company Number: BR-RANBAXY-2009RR-26001

PATIENT
  Age: 54 Year
  Sex: Male

DRUGS (5)
  1. FENOFIBRATE [Suspect]
     Indication: HYPERTRIGLYCERIDAEMIA
     Dosage: 200 MG, QD
  2. PROPRANOLOL [Suspect]
     Indication: HYPERTENSION
     Dosage: 40 MG, BID
  3. NIFEDIPINE OROS [Concomitant]
     Indication: HYPERTENSION
     Dosage: 30 MG, BID
     Route: 065
  4. AZITHROMYCYN [Concomitant]
  5. NIMESULIDE [Concomitant]

REACTIONS (5)
  - ALANINE AMINOTRANSFERASE INCREASED [None]
  - BLOOD LACTATE DEHYDROGENASE INCREASED [None]
  - HYPOTHYROIDISM [None]
  - RENAL FAILURE CHRONIC [None]
  - RHABDOMYOLYSIS [None]
